FAERS Safety Report 7215964-0 (Version None)
Quarter: 2011Q1

REPORT INFORMATION
  Report Type: 
  Country: None (occurrence: None)
  Receive Date: 20110105
  Receipt Date: 20110105
  Transmission Date: 20110831
  Serious: No
  Sender: FDA-Public Use
  Company Number: None

PATIENT

DRUGS (1)
  1. DARVOCET-N 100 [Suspect]

REACTIONS (5)
  - NAUSEA [None]
  - DIZZINESS [None]
  - HYPERTENSION [None]
  - HEART RATE IRREGULAR [None]
  - DYSPNOEA [None]
